FAERS Safety Report 9363443 (Version 7)
Quarter: 2014Q2

REPORT INFORMATION
  Report Type: Spontaneous
  Country: US (occurrence: US)
  Receive Date: 20130624
  Receipt Date: 20140515
  Transmission Date: 20141212
  Serious: Yes (Life-Threatening, Hospitalization)
  Sender: FDA-Public Use
  Company Number: US-JNJFOC-20130611217

PATIENT
  Age: 8 Year
  Sex: Female
  Weight: 22.5 kg

DRUGS (18)
  1. CHILDRENS TYLENOL [Suspect]
     Indication: PYREXIA
     Route: 048
     Dates: start: 20060324, end: 20060324
  2. CHILDRENS TYLENOL [Suspect]
     Indication: PYREXIA
     Route: 048
     Dates: start: 20060325, end: 20060325
  3. CHILDRENS TYLENOL [Suspect]
     Indication: PYREXIA
     Route: 048
     Dates: start: 20060326, end: 20060326
  4. CHILDRENS TYLENOL [Suspect]
     Indication: PYREXIA
     Dosage: 500-1000 MG
     Route: 048
     Dates: start: 20060318
  5. CHILDRENS TYLENOL [Suspect]
     Indication: PYREXIA
     Dosage: 1500-2000 MG
     Route: 048
     Dates: start: 20060319, end: 20060322
  6. BENADRYL COLD AND ALLERGY [Suspect]
     Indication: UPPER RESPIRATORY TRACT INFECTION
     Route: 065
     Dates: start: 20060325
  7. KETOROLAC [Concomitant]
     Indication: PRODUCT USED FOR UNKNOWN INDICATION
     Route: 042
     Dates: start: 20060327, end: 20060328
  8. ACYCLOVIR [Concomitant]
     Indication: PRODUCT USED FOR UNKNOWN INDICATION
     Route: 042
     Dates: start: 20060327, end: 20060328
  9. 5% DEXTROSE IN 0.45% NORMAL SALINE [Concomitant]
     Indication: PRODUCT USED FOR UNKNOWN INDICATION
     Route: 065
     Dates: start: 20060327, end: 20060328
  10. CLAFORAN [Concomitant]
     Indication: PRODUCT USED FOR UNKNOWN INDICATION
     Route: 042
     Dates: start: 20060327, end: 20060328
  11. POTASSIUM CHLORIDE [Concomitant]
     Indication: PRODUCT USED FOR UNKNOWN INDICATION
     Route: 042
  12. D5LR [Concomitant]
     Indication: PRODUCT USED FOR UNKNOWN INDICATION
     Route: 065
  13. GENTAMICIN [Concomitant]
     Indication: PRODUCT USED FOR UNKNOWN INDICATION
     Route: 042
  14. AZITHROMYCIN [Concomitant]
     Indication: PRODUCT USED FOR UNKNOWN INDICATION
     Route: 042
     Dates: start: 20060326, end: 20060328
  15. XOPENEX [Concomitant]
     Indication: PRODUCT USED FOR UNKNOWN INDICATION
     Route: 055
     Dates: start: 20060327
  16. FENTANYL [Concomitant]
     Indication: PRODUCT USED FOR UNKNOWN INDICATION
     Route: 042
     Dates: start: 20060326, end: 20060328
  17. FLUMAZENIL [Concomitant]
     Indication: PRODUCT USED FOR UNKNOWN INDICATION
     Route: 042
     Dates: start: 20060326, end: 20060328
  18. VANCOMYCIN [Concomitant]
     Route: 042

REACTIONS (9)
  - Coma hepatic [Recovered/Resolved]
  - Hepatitis [Unknown]
  - Acute hepatic failure [Recovered/Resolved]
  - Encephalopathy [Recovering/Resolving]
  - Metabolic acidosis [Unknown]
  - Atelectasis [Unknown]
  - Coagulopathy [Recovering/Resolving]
  - Incorrect drug administration duration [Unknown]
  - Overdose [Unknown]
